FAERS Safety Report 23890475 (Version 1)
Quarter: 2024Q2

REPORT INFORMATION
  Report Type: Spontaneous
  Country: CH (occurrence: CH)
  Receive Date: 20240523
  Receipt Date: 20240523
  Transmission Date: 20240716
  Serious: Yes (Other)
  Sender: FDA-Public Use
  Company Number: CH-JNJFOC-20240480826

PATIENT
  Age: 64 Year
  Sex: Female
  Weight: 52 kg

DRUGS (5)
  1. SPRAVATO [Suspect]
     Active Substance: ESKETAMINE
     Indication: Depression
     Dosage: 56-84 MG, TOTAL 21 TIMES
     Dates: start: 20230915, end: 20240325
  2. SPRAVATO [Suspect]
     Active Substance: ESKETAMINE
     Indication: Major depression
  3. ESCITALOPRAM [Concomitant]
     Active Substance: ESCITALOPRAM OXALATE
     Indication: Depression
     Dosage: FOR MANY YEARS
     Route: 065
  4. TRAZODONE [Concomitant]
     Active Substance: TRAZODONE HYDROCHLORIDE
     Indication: Depression
     Dosage: FOR MANY YEARS
     Route: 065
  5. TRAZODONE [Concomitant]
     Active Substance: TRAZODONE HYDROCHLORIDE
     Indication: Sleep disorder

REACTIONS (5)
  - Hypomania [Not Recovered/Not Resolved]
  - Condition aggravated [Unknown]
  - Euphoric mood [Unknown]
  - Abnormal behaviour [Unknown]
  - Irritability [Unknown]

NARRATIVE: CASE EVENT DATE: 20240325
